FAERS Safety Report 5653459-6 (Version None)
Quarter: 2008Q1

REPORT INFORMATION
  Report Type: 
  Country: None (occurrence: None)
  Receive Date: 20080306
  Receipt Date: 20080304
  Transmission Date: 20080703
  Serious: Yes (Hospitalization)
  Sender: FDA-Public Use
  Company Number: B0511187A

PATIENT
  Sex: Male
  Weight: 75 kg

DRUGS (2)
  1. AVODART [Suspect]
     Indication: BENIGN PROSTATIC HYPERPLASIA
     Route: 048
     Dates: end: 20070813
  2. ROSUVASTATIN [Concomitant]
     Route: 048

REACTIONS (2)
  - GALACTORRHOEA [None]
  - GYNAECOMASTIA [None]
